FAERS Safety Report 13628242 (Version 2)
Quarter: 2017Q2

REPORT INFORMATION
  Report Type: Spontaneous
  Country: FR (occurrence: FR)
  Receive Date: 20170608
  Receipt Date: 20170621
  Transmission Date: 20170830
  Serious: Yes (Life-Threatening)
  Sender: FDA-Public Use
  Company Number: FR-PFIZER INC-2017245839

PATIENT
  Age: 61 Year
  Sex: Female

DRUGS (9)
  1. LASILIX [Concomitant]
     Active Substance: FUROSEMIDE
     Dosage: UNK
  2. APROVEL [Concomitant]
     Active Substance: IRBESARTAN
     Dosage: UNK
  3. LEVOFLOXACIN. [Interacting]
     Active Substance: LEVOFLOXACIN
     Indication: ARTHRITIS BACTERIAL
     Dosage: 750 MG, 1X/DAY
     Route: 048
     Dates: start: 20170426, end: 20170515
  4. SIMVASTATIN. [Concomitant]
     Active Substance: SIMVASTATIN
     Dosage: UNK
  5. CORDARONE [Suspect]
     Active Substance: AMIODARONE HYDROCHLORIDE
     Dosage: 200 MG, 1X/DAY
     Route: 048
     Dates: end: 20170516
  6. PRIMPERAN [Interacting]
     Active Substance: METOCLOPRAMIDE HYDROCHLORIDE
     Indication: NAUSEA
     Dosage: 5 MG, 3X/DAY
     Route: 048
     Dates: start: 20170429, end: 20170516
  7. COUMADINE [Concomitant]
     Active Substance: WARFARIN SODIUM
     Dosage: UNK
  8. SPECIAFOLDINE [Concomitant]
     Active Substance: FOLIC ACID
     Dosage: UNK
  9. EPREX [Concomitant]
     Active Substance: ERYTHROPOIETIN
     Dosage: UNK

REACTIONS (3)
  - Drug interaction [Recovering/Resolving]
  - Electrocardiogram QT prolonged [Recovering/Resolving]
  - Torsade de pointes [Recovering/Resolving]

NARRATIVE: CASE EVENT DATE: 20170515
